FAERS Safety Report 17402235 (Version 2)
Quarter: 2020Q3

REPORT INFORMATION
  Report Type: Report from Study
  Country: US (occurrence: US)
  Receive Date: 20200211
  Receipt Date: 20200806
  Transmission Date: 20201102
  Serious: No
  Sender: FDA-Public Use
  Company Number: US-SA-2020SA028920

PATIENT

DRUGS (2)
  1. TERIFLUNOMIDE. [Suspect]
     Active Substance: TERIFLUNOMIDE
     Indication: MULTIPLE SCLEROSIS
     Dosage: 14 MG, QD
     Route: 048
     Dates: start: 201907, end: 202003
  2. NEXPLANON [Concomitant]
     Active Substance: ETONOGESTREL

REACTIONS (9)
  - Alanine aminotransferase increased [Unknown]
  - Hepatic pain [Unknown]
  - Laboratory test abnormal [Unknown]
  - Therapy cessation [Unknown]
  - Alopecia [Recovered/Resolved]
  - Off label use [Unknown]
  - Hepatic enzyme increased [Unknown]
  - Hypoaesthesia [Recovered/Resolved]
  - Paraesthesia [Recovered/Resolved]

NARRATIVE: CASE EVENT DATE: 2019
